FAERS Safety Report 11003004 (Version 1)
Quarter: 2015Q2

REPORT INFORMATION
  Report Type: Other
  Country: GB (occurrence: GB)
  Receive Date: 20150408
  Receipt Date: 20150408
  Transmission Date: 20150821
  Serious: Yes (Hospitalization, Other)
  Sender: FDA-Public Use
  Company Number: GB-ENDO PHARMACEUTICALS INC-2015-000293

PATIENT
  Age: 40 Year
  Sex: Male

DRUGS (5)
  1. TRENBOLONE ACETATE [Suspect]
     Active Substance: TRENBOLONE ACETATE
     Indication: PRODUCT USED FOR UNKNOWN INDICATION
     Route: 065
  2. FORTESTA [Suspect]
     Active Substance: TESTOSTERONE
     Indication: MUSCLE HYPERTROPHY
     Route: 065
  3. STANOZOLOL [Suspect]
     Active Substance: STANOZOLOL
     Indication: PRODUCT USED FOR UNKNOWN INDICATION
     Route: 065
  4. DELATESTRYL [Suspect]
     Active Substance: TESTOSTERONE ENANTHATE
     Indication: MUSCLE HYPERTROPHY
     Route: 065
  5. DROMOSTANOLONE [Suspect]
     Active Substance: DROMOSTANOLONE PROPIONATE
     Indication: MUSCLE HYPERTROPHY
     Route: 065

REACTIONS (5)
  - Transient ischaemic attack [Recovered/Resolved]
  - Cholestasis [Recovered/Resolved]
  - Polycythaemia [Recovered/Resolved]
  - Drug abuse [Recovered/Resolved]
  - Lacunar infarction [Recovered/Resolved]
